FAERS Safety Report 8042965-5 (Version None)
Quarter: 2012Q1

REPORT INFORMATION
  Report Type: 
  Country: None (occurrence: None)
  Receive Date: 20120112
  Receipt Date: 20120103
  Transmission Date: 20120608
  Serious: Yes (Other)
  Sender: FDA-Public Use
  Company Number: PHHY2012TW001378

PATIENT
  Sex: Female

DRUGS (2)
  1. SEBIVO [Suspect]
     Indication: HEPATITIS B
     Dosage: 600 MG/DAY
     Route: 048
     Dates: start: 20091111
  2. ADEFOVIR [Concomitant]
     Indication: HEPATITIS B
     Dosage: 10 MG/DAY
     Route: 048
     Dates: start: 20091111

REACTIONS (2)
  - HYPOAESTHESIA [None]
  - MUSCULAR WEAKNESS [None]
